FAERS Safety Report 15850232 (Version 7)
Quarter: 2020Q1

REPORT INFORMATION
  Report Type: Spontaneous
  Country: US (occurrence: US)
  Receive Date: 20190121
  Receipt Date: 20200306
  Transmission Date: 20200409
  Serious: No
  Sender: FDA-Public Use
  Company Number: US-PFIZER INC-2019019451

PATIENT
  Age: 52 Year
  Sex: Female
  Weight: 109 kg

DRUGS (7)
  1. PREMPRO [Suspect]
     Active Substance: ESTROGENS, CONJUGATED\MEDROXYPROGESTERONE ACETATE
     Indication: MENOPAUSAL SYMPTOMS
     Dosage: 625/2.5 MG, 1X/DAY [ONCE DAILY]
     Route: 048
  2. PREMPRO [Suspect]
     Active Substance: ESTROGENS, CONJUGATED\MEDROXYPROGESTERONE ACETATE
     Dosage: 1 DF, 1X/DAY [0.625-0.25 MG, 1 TABLET ONCE DAILY BY MOUTH]
     Route: 048
  3. LISINOPRIL. [Concomitant]
     Active Substance: LISINOPRIL
     Indication: HYPERTENSION
     Dosage: 20 MG, 1X/DAY (20MG WITH 12.5 OF WATER PILL, TAKE ONCE PER DAY IN AFTERNOON)
     Route: 048
  4. ALPRAZOLAM. [Concomitant]
     Active Substance: ALPRAZOLAM
     Indication: POST-TRAUMATIC STRESS DISORDER
     Dosage: 2 MG, 3X/DAY
     Route: 048
  5. PREMPRO [Suspect]
     Active Substance: ESTROGENS, CONJUGATED\MEDROXYPROGESTERONE ACETATE
     Indication: HORMONE REPLACEMENT THERAPY
     Dosage: UNK UNK, 1X/DAY [0.625MG/2.5MG]
     Route: 048
  6. PREMPRO [Suspect]
     Active Substance: ESTROGENS, CONJUGATED\MEDROXYPROGESTERONE ACETATE
     Dosage: 0.625MG/2.5MG TABLET ONCE A DAY]
     Route: 048
     Dates: start: 2018
  7. CLONIDINE. [Concomitant]
     Active Substance: CLONIDINE
     Indication: HYPERTENSION
     Dosage: 0.3 MG, 4X/DAY
     Route: 048

REACTIONS (13)
  - Weight decreased [Unknown]
  - Weight increased [Recovering/Resolving]
  - Insomnia [Not Recovered/Not Resolved]
  - Disturbance in attention [Recovering/Resolving]
  - Feeling abnormal [Unknown]
  - Personality change [Recovering/Resolving]
  - Hypertension [Recovering/Resolving]
  - Depressed mood [Not Recovered/Not Resolved]
  - Therapeutic response unexpected [Unknown]
  - Tremor [Unknown]
  - Pre-existing condition improved [Unknown]
  - Blood pressure decreased [Unknown]
  - Body height decreased [Unknown]
